FAERS Safety Report 16705850 (Version 1)
Quarter: 2019Q3

REPORT INFORMATION
  Report Type: Spontaneous
  Country: US (occurrence: US)
  Receive Date: 20190815
  Receipt Date: 20190815
  Transmission Date: 20191004
  Serious: Yes (Disabling)
  Sender: FDA-Public Use
  Company Number: US-ASSERTIO THERAPEUTICS, INC.-US-2019DEP000842

PATIENT
  Age: 68 Year
  Sex: Male
  Weight: 83.9 kg

DRUGS (1)
  1. GRALISE [Suspect]
     Active Substance: GABAPENTIN
     Indication: ARTHRALGIA
     Dosage: TITRATED TO 1500 MG, QD
     Route: 048
     Dates: start: 20190722, end: 20190802

REACTIONS (3)
  - Product use in unapproved indication [Unknown]
  - Joint swelling [Not Recovered/Not Resolved]
  - Arthralgia [Not Recovered/Not Resolved]

NARRATIVE: CASE EVENT DATE: 2019
